FAERS Safety Report 4333981-5 (Version None)
Quarter: 2004Q2

REPORT INFORMATION
  Report Type: 
  Country: None (occurrence: None)
  Receive Date: 20040407
  Receipt Date: 20020516
  Transmission Date: 20050107
  Serious: Yes (Disabling)
  Sender: FDA-Public Use
  Company Number: US-MERCK-0205USA02080

PATIENT
  Age: 48 Year
  Sex: Female
  Weight: 82 kg

DRUGS (2)
  1. SYNTHROID [Concomitant]
     Indication: THYROIDECTOMY
     Route: 065
     Dates: start: 20000101
  2. VIOXX [Suspect]
     Indication: ARTHROPATHY
     Route: 048
     Dates: start: 20020101

REACTIONS (4)
  - DISORIENTATION [None]
  - FEELING ABNORMAL [None]
  - HYPERTENSION [None]
  - SLEEP DISORDER [None]
